FAERS Safety Report 25255762 (Version 4)
Quarter: 2025Q2

REPORT INFORMATION
  Report Type: Spontaneous
  Country: US (occurrence: US)
  Receive Date: 20250430
  Receipt Date: 20250624
  Transmission Date: 20250717
  Serious: Yes (Other)
  Sender: PFIZER
  Company Number: US-PFIZER INC-202500087806

PATIENT
  Age: 4 Year
  Sex: Male
  Weight: 28.118 kg

DRUGS (9)
  1. GENOTROPIN [Suspect]
     Active Substance: SOMATROPIN
     Indication: Growth hormone deficiency
     Dates: start: 201903, end: 20220419
  2. GENOTROPIN [Suspect]
     Active Substance: SOMATROPIN
  3. ENALAPRIL [Concomitant]
     Active Substance: ENALAPRIL
     Indication: Cardiac failure
     Dosage: 0.7 MG LIQUID TWICE A DAILY THROUGH GT TUBE
     Dates: start: 2017, end: 202204
  4. ASPIRIN [Concomitant]
     Active Substance: ASPIRIN
     Indication: Anticoagulant therapy
     Dosage: 82 MG DISSOLVE TABLET ONE A DAY, DISSOLVED AND PUT IN G-TUBE
     Dates: start: 2017, end: 202204
  5. OMEPRAZOLE [Concomitant]
     Active Substance: OMEPRAZOLE
     Indication: Gastrooesophageal reflux disease
     Dosage: 20 MG ONCE DAILY, SOLU TAB THAT MELTS IN MOUTH, RUSHED DELIVERED
     Route: 048
     Dates: end: 202410
  6. TACROLIMUS [Concomitant]
     Active Substance: TACROLIMUS
     Indication: Immunosuppression
     Dosage: 1.4 MG, 2X/DAY
  7. CELLCEPT [Concomitant]
     Active Substance: MYCOPHENOLATE MOFETIL
     Indication: Immunosuppression
     Dosage: 500 MG, 2X/DAY
  8. LOSARTAN [Concomitant]
     Active Substance: LOSARTAN
     Indication: Transplant rejection
     Dosage: 11.5 MG, 1X/DAY (9AM)
  9. LOSARTAN [Concomitant]
     Active Substance: LOSARTAN
     Indication: Immunosuppression

REACTIONS (3)
  - Fontan procedure [Recovered/Resolved]
  - Heart transplant [Unknown]
  - Ventricular assist device insertion [Unknown]

NARRATIVE: CASE EVENT DATE: 20220419
